FAERS Safety Report 18127656 (Version 2)
Quarter: 2022Q1

REPORT INFORMATION
  Report Type: Spontaneous
  Country: CH (occurrence: CH)
  Receive Date: 20200810
  Receipt Date: 20220202
  Transmission Date: 20220423
  Serious: Yes (Other)
  Sender: FDA-Public Use
  Company Number: CH-SM-2020-14832

PATIENT
  Age: 58 Year
  Sex: Male

DRUGS (1)
  1. TRAMADOL HYDROCHLORIDE [Suspect]
     Active Substance: TRAMADOL HYDROCHLORIDE
     Indication: Tumour pain
     Route: 048
     Dates: start: 2016, end: 2016

REACTIONS (5)
  - Confusional state [Recovered/Resolved]
  - Hallucination [Recovered/Resolved]
  - Hypotonia [Recovered/Resolved]
  - Overdose [Recovered/Resolved]
  - Product dispensing error [Recovered/Resolved]

NARRATIVE: CASE EVENT DATE: 20160101
